FAERS Safety Report 10029191 (Version 1)
Quarter: 2014Q1

REPORT INFORMATION
  Report Type: Spontaneous
  Country: SE (occurrence: SE)
  Receive Date: 20140321
  Receipt Date: 20140321
  Transmission Date: 20141002
  Serious: Yes (Death)
  Sender: FDA-Public Use
  Company Number: SE-ASTRAZENECA-2014SE19493

PATIENT
  Age: 52 Year
  Sex: Male

DRUGS (1)
  1. SEROQUEL DEPOT [Suspect]
     Route: 048

REACTIONS (1)
  - Death [Fatal]
